FAERS Safety Report 20802910 (Version 1)
Quarter: 2022Q2

REPORT INFORMATION
  Report Type: Spontaneous
  Country: CN (occurrence: CN)
  Receive Date: 20220509
  Receipt Date: 20220509
  Transmission Date: 20220721
  Serious: Yes (Hospitalization)
  Sender: FDA-Public Use
  Company Number: CN-PFIZER INC-202200644276

PATIENT
  Sex: Male
  Weight: 74 kg

DRUGS (1)
  1. CELEBREX [Suspect]
     Active Substance: CELECOXIB
     Indication: Spinal pain
     Dosage: 0.2 G, 2X/DAY
     Route: 048
     Dates: start: 20220302, end: 20220304

REACTIONS (3)
  - Erythema [Recovered/Resolved]
  - Papule [Recovered/Resolved]
  - Pruritus [Recovering/Resolving]

NARRATIVE: CASE EVENT DATE: 20220305
